FAERS Safety Report 17599132 (Version 1)
Quarter: 2020Q1

REPORT INFORMATION
  Report Type: Spontaneous
  Country: FR (occurrence: FR)
  Receive Date: 20200330
  Receipt Date: 20200330
  Transmission Date: 20200409
  Serious: Yes (Other)
  Sender: FDA-Public Use
  Company Number: FR-ROCHE-2573125

PATIENT
  Age: 26 Year
  Sex: Female

DRUGS (3)
  1. OMALIZUMAB. [Suspect]
     Active Substance: OMALIZUMAB
     Indication: PRODUCT USED FOR UNKNOWN INDICATION
     Dosage: UNK
     Route: 065
  2. DUPILUMAB [Suspect]
     Active Substance: DUPILUMAB
     Indication: DERMATITIS ATOPIC
     Route: 065
  3. DUPILUMAB [Suspect]
     Active Substance: DUPILUMAB
     Route: 065
     Dates: start: 20190706

REACTIONS (3)
  - Conjunctivitis [Recovered/Resolved]
  - Herpes ophthalmic [Recovered/Resolved]
  - Eye pain [Recovered/Resolved]

NARRATIVE: CASE EVENT DATE: 20190823
